FAERS Safety Report 8998526 (Version 1)
Quarter: 2013Q1

REPORT INFORMATION
  Report Type: Report from Study
  Country: JP (occurrence: JP)
  Receive Date: 20130103
  Receipt Date: 20130103
  Transmission Date: 20140127
  Serious: Yes (Hospitalization)
  Sender: FDA-Public Use
  Company Number: JP-ROCHE-1175519

PATIENT
  Age: 89 Year
  Sex: Female
  Weight: 61 kg

DRUGS (4)
  1. ALTEPLASE [Suspect]
     Indication: EMBOLIC STROKE
     Route: 040
     Dates: start: 20110930, end: 20110930
  2. RADICUT [Suspect]
     Indication: EMBOLIC STROKE
     Route: 041
     Dates: start: 20110930, end: 20111004
  3. NOVASTAN [Concomitant]
     Route: 065
     Dates: start: 20111001, end: 20111004
  4. WARFARIN POTASSIUM [Concomitant]
     Route: 048
     Dates: start: 20111004

REACTIONS (2)
  - Haematemesis [Recovering/Resolving]
  - Hiatus hernia [Recovering/Resolving]
